FAERS Safety Report 23051764 (Version 2)
Quarter: 2024Q1

REPORT INFORMATION
  Report Type: Report from Study
  Country: FR (occurrence: FR)
  Receive Date: 20231010
  Receipt Date: 20240109
  Transmission Date: 20240410
  Serious: Yes (Other)
  Sender: FDA-Public Use
  Company Number: FR-009507513-2310FRA002366

PATIENT
  Age: 4 Month

DRUGS (3)
  1. LETERMOVIR [Suspect]
     Active Substance: LETERMOVIR
     Indication: Antiviral prophylaxis
     Dosage: UNK UNK, QD
     Route: 048
  2. LETERMOVIR [Suspect]
     Active Substance: LETERMOVIR
     Indication: Antiviral prophylaxis
     Route: 042
  3. GANCICLOVIR [Concomitant]
     Active Substance: GANCICLOVIR

REACTIONS (2)
  - Pathogen resistance [Unknown]
  - Off label use [Unknown]
